FAERS Safety Report 22003659 (Version 1)
Quarter: 2023Q1

REPORT INFORMATION
  Report Type: Other
  Country: IT (occurrence: IT)
  Receive Date: 20230217
  Receipt Date: 20230217
  Transmission Date: 20230417
  Serious: Yes (Hospitalization, Other)
  Sender: FDA-Public Use
  Company Number: IT-Prasco Laboratories-PRAS20230045

PATIENT
  Age: 31 Year
  Sex: Female

DRUGS (4)
  1. FLUPHENAZINE HYDROCHLORIDE [Suspect]
     Active Substance: FLUPHENAZINE HYDROCHLORIDE
     Indication: Respiratory tract infection
     Dosage: 25 MG
     Route: 065
  2. MONTELUKAST [Concomitant]
     Active Substance: MONTELUKAST SODIUM
     Indication: Respiratory tract infection
  3. SOBREROL, TRANS-, (+/-)- [Concomitant]
     Active Substance: SOBREROL, TRANS-, (+/-)-
     Indication: Respiratory tract infection
  4. VALPROATE SODIUM [Concomitant]
     Active Substance: VALPROATE SODIUM
     Indication: Epilepsy
     Dosage: 500 MG

REACTIONS (18)
  - Neurotoxicity [Recovering/Resolving]
  - Parkinsonism [Recovering/Resolving]
  - Accidental overdose [Recovering/Resolving]
  - Product prescribing error [None]
  - Extrapyramidal disorder [Recovering/Resolving]
  - Reduced facial expression [Recovering/Resolving]
  - Muscle rigidity [Recovering/Resolving]
  - Bradykinesia [Recovering/Resolving]
  - Amnesia [Recovering/Resolving]
  - Somnolence [Recovering/Resolving]
  - Apathy [Recovering/Resolving]
  - Lack of spontaneous speech [Recovering/Resolving]
  - Dysphonia [Recovering/Resolving]
  - Dysstasia [Recovering/Resolving]
  - Gait disturbance [Recovering/Resolving]
  - Resting tremor [Recovering/Resolving]
  - Anal incontinence [Recovering/Resolving]
  - Bedridden [Recovering/Resolving]

NARRATIVE: CASE EVENT DATE: 20070101
